FAERS Safety Report 4691317-4 (Version None)
Quarter: 2005Q2

REPORT INFORMATION
  Report Type: 
  Country: None (occurrence: None)
  Receive Date: 20050615
  Receipt Date: 20050609
  Transmission Date: 20051028
  Serious: Yes (Other)
  Sender: FDA-Public Use
  Company Number: FR-MERCK-0506FRA00043

PATIENT
  Age: 80 Year
  Sex: Female

DRUGS (1)
  1. FOSAMAX [Suspect]
     Indication: OSTEOPOROSIS
     Route: 048
     Dates: start: 20050501, end: 20050601

REACTIONS (2)
  - GRAND MAL CONVULSION [None]
  - PARAESTHESIA [None]
